FAERS Safety Report 21830285 (Version 1)
Quarter: 2023Q1

REPORT INFORMATION
  Report Type: Spontaneous
  Country: IT (occurrence: None)
  Receive Date: 20230106
  Receipt Date: 20230106
  Transmission Date: 20230417
  Serious: Yes (Life-Threatening, Hospitalization)
  Sender: FDA-Public Use
  Company Number: 2023A001474

PATIENT
  Age: 57 Year
  Sex: Male
  Weight: 70 kg

DRUGS (2)
  1. TICAGRELOR [Suspect]
     Active Substance: TICAGRELOR
     Indication: Arterial thrombosis
     Dosage: 180 MG ON AND THEN 90 MG 1 CPX2
     Route: 065
     Dates: start: 20220823, end: 20220825
  2. BISOPROLOL FUMARATE [Suspect]
     Active Substance: BISOPROLOL FUMARATE
     Dosage: BISOPROLO 2,5 MG 1 CP
     Route: 065
     Dates: start: 20220823, end: 20220825

REACTIONS (1)
  - Sinus arrest [Recovered/Resolved]

NARRATIVE: CASE EVENT DATE: 20220825
